FAERS Safety Report 7323344-2 (Version None)
Quarter: 2011Q1

REPORT INFORMATION
  Report Type: 
  Country: None (occurrence: None)
  Receive Date: 20110301
  Receipt Date: 20110222
  Transmission Date: 20110831
  Serious: Yes (Other)
  Sender: FDA-Public Use
  Company Number: DE-PFIZER INC-2011038950

PATIENT
  Sex: Female

DRUGS (1)
  1. AROMASIN [Suspect]
     Dosage: UNK

REACTIONS (1)
  - ARTHROPATHY [None]
